FAERS Safety Report 7474618-6 (Version None)
Quarter: 2011Q1

REPORT INFORMATION
  Report Type: 
  Country: None (occurrence: None)
  Receive Date: 20110302
  Receipt Date: 20101206
  Transmission Date: 20110831
  Serious: Yes (Other)
  Sender: FDA-Public Use
  Company Number: 163-21880-10061641

PATIENT
  Age: 69 Year
  Sex: Female

DRUGS (5)
  1. REVLIMID [Suspect]
  2. INFED [Concomitant]
  3. REVLIMID [Suspect]
     Indication: ANAEMIA
     Dosage: 25 MG, DAILY FOR 21 DAYS, PO
     Route: 048
     Dates: start: 20090610
  4. REVLIMID [Suspect]
     Indication: MULTIPLE MYELOMA
     Dosage: 25 MG, DAILY FOR 21 DAYS, PO
     Route: 048
     Dates: start: 20090610
  5. REVLIMID [Suspect]

REACTIONS (7)
  - ASTHMA [None]
  - ANAEMIA [None]
  - URTICARIA [None]
  - NASOPHARYNGITIS [None]
  - DIARRHOEA [None]
  - DYSPNOEA [None]
  - IRON OVERLOAD [None]
